FAERS Safety Report 6810249-6 (Version None)
Quarter: 2010Q2

REPORT INFORMATION
  Report Type: 
  Country: None (occurrence: None)
  Receive Date: 20100630
  Receipt Date: 20100624
  Transmission Date: 20101027
  Serious: Yes (Death)
  Sender: FDA-Public Use
  Company Number: US-GILEAD-2010-0028427

PATIENT
  Sex: Female
  Weight: 53.118 kg

DRUGS (10)
  1. LETAIRIS [Suspect]
     Indication: PULMONARY ARTERIAL HYPERTENSION
     Route: 048
     Dates: start: 20100302
  2. ASPIRIN [Concomitant]
  3. FUROSEMIDE [Concomitant]
  4. METOPROLOL [Concomitant]
  5. AMLODIPINE [Concomitant]
  6. FOSAMAX [Concomitant]
  7. TYLENOL [Concomitant]
  8. SIMVASTATIN [Concomitant]
  9. SYMBICORT [Concomitant]
  10. VERAMYST [Concomitant]

REACTIONS (1)
  - PNEUMONIA [None]
